FAERS Safety Report 7433243-3 (Version None)
Quarter: 2011Q2

REPORT INFORMATION
  Report Type: 
  Country: None (occurrence: None)
  Receive Date: 20110415
  Receipt Date: 20110331
  Transmission Date: 20111010
  Serious: Yes (Life-Threatening, Hospitalization)
  Sender: FDA-Public Use
  Company Number: ADE2009-0471

PATIENT
  Age: 77 Year
  Sex: Female

DRUGS (10)
  1. CIMETIDINE [Concomitant]
  2. ISOSORBIDE MONONITRATE 20 MG [Concomitant]
  3. CIPROFLOXACIN [Suspect]
     Indication: URINARY TRACT INFECTION
  4. NICORANDIL 10MG [Concomitant]
  5. ASPIRIN [Concomitant]
  6. PINDOLOL 2,5MG [Concomitant]
  7. LEVOTHYROXINE 100MCG [Concomitant]
  8. ACETYLSALICYLIC ACID 75MG [Concomitant]
  9. SIMVASTATIN [Suspect]
     Dosage: 40MG, QD
  10. FUROSEMIDE [Concomitant]

REACTIONS (3)
  - DRUG INTERACTION [None]
  - RHABDOMYOLYSIS [None]
  - DYSSTASIA [None]
